FAERS Safety Report 8076943-7 (Version None)
Quarter: 2012Q1

REPORT INFORMATION
  Report Type: 
  Country: None (occurrence: None)
  Receive Date: 20120127
  Receipt Date: 20120126
  Transmission Date: 20120608
  Serious: Yes (Hospitalization)
  Sender: FDA-Public Use
  Company Number: IT-ABBOTT-12P-083-0897851-00

PATIENT
  Sex: Female

DRUGS (3)
  1. TIARTAN [Suspect]
     Indication: HYPERTENSION
     Dosage: 600/12.5 MG DAILY
     Route: 048
     Dates: start: 20110722, end: 20120122
  2. LOSARTAN POTASSIUM [Suspect]
     Indication: HYPERTENSION
     Route: 048
     Dates: start: 20120120
  3. NEBIVOLOL HCL [Suspect]
     Indication: HYPERTENSION
     Dosage: 1 UNIT DAILY
     Route: 048
     Dates: start: 20110122

REACTIONS (2)
  - HYPOTENSION [None]
  - SYNCOPE [None]
